FAERS Safety Report 9283693 (Version 6)
Quarter: 2016Q3

REPORT INFORMATION
  Report Type: Spontaneous
  Country: US (occurrence: US)
  Receive Date: 20130510
  Receipt Date: 20160726
  Transmission Date: 20161109
  Serious: Yes (Other)
  Sender: FDA-Public Use
  Company Number: US-GLAXOSMITHKLINE-A1022800A

PATIENT
  Age: 63 Year
  Sex: Female

DRUGS (12)
  1. VENTOLIN HFA [Suspect]
     Active Substance: ALBUTEROL SULFATE
     Indication: PRODUCT USED FOR UNKNOWN INDICATION
     Dosage: 1 PUFF(S), PRN
     Route: 055
  2. FLOVENT [Concomitant]
     Active Substance: FLUTICASONE PROPIONATE
  3. HCTZ [Concomitant]
     Active Substance: HYDROCHLOROTHIAZIDE
  4. SALINE NOSE SPRAY [Concomitant]
  5. PHAZYME [Concomitant]
     Active Substance: DIMETHICONE 410
  6. VENTOLIN [Concomitant]
     Active Substance: ALBUTEROL SULFATE
  7. HYDROCORTISONE OINTMENT [Concomitant]
  8. SINGULAIR [Concomitant]
     Active Substance: MONTELUKAST SODIUM
  9. PREVIDENT [Concomitant]
     Active Substance: SODIUM FLUORIDE
  10. SODIUM CHLORIDE. [Concomitant]
     Active Substance: SODIUM CHLORIDE
     Dosage: EYEDROPS
  11. ADVAIR HFA [Suspect]
     Active Substance: FLUTICASONE PROPIONATE\SALMETEROL XINAFOATE
     Indication: ASTHMA
     Dosage: 250/50 MCG, 1 PUFF
     Route: 055
  12. MUCINEX [Concomitant]
     Active Substance: GUAIFENESIN

REACTIONS (8)
  - Hypervigilance [Recovered/Resolved]
  - Product taste abnormal [Unknown]
  - Product quality issue [Recovered/Resolved]
  - Inhalation therapy [Unknown]
  - Drug ineffective [Unknown]
  - Dyspnoea [Recovered/Resolved]
  - Sputum increased [Recovered/Resolved]
  - Restlessness [Recovered/Resolved]

NARRATIVE: CASE EVENT DATE: 20130507
